FAERS Safety Report 5576589-6 (Version None)
Quarter: 2007Q4

REPORT INFORMATION
  Report Type: 
  Country: None (occurrence: None)
  Receive Date: 20071228
  Receipt Date: 20071116
  Transmission Date: 20080405
  Serious: No
  Sender: FDA-Public Use
  Company Number: A0694984A

PATIENT
  Age: 37 Year
  Sex: Male

DRUGS (6)
  1. FLOVENT [Suspect]
     Indication: BRONCHITIS
     Dosage: 2PUFF TWICE PER DAY
     Route: 055
     Dates: start: 20071109
  2. MEDROL [Suspect]
     Dates: start: 20071109, end: 20071113
  3. LOPRESSOR [Concomitant]
  4. KLONOPIN [Concomitant]
  5. SINGULAIR [Concomitant]
  6. LEXAPRO [Concomitant]

REACTIONS (7)
  - ANXIETY [None]
  - BLOOD PRESSURE DECREASED [None]
  - DIZZINESS [None]
  - INSOMNIA [None]
  - PANIC REACTION [None]
  - POLLAKIURIA [None]
  - POOR QUALITY SLEEP [None]
